FAERS Safety Report 5909926-0 (Version None)
Quarter: 2008Q4

REPORT INFORMATION
  Report Type: 
  Country: None (occurrence: None)
  Receive Date: 20081006
  Receipt Date: 20081006
  Transmission Date: 20090506
  Serious: Yes (Hospitalization)
  Sender: FDA-Public Use
  Company Number: None

PATIENT
  Sex: Male
  Weight: 75.4 kg

DRUGS (3)
  1. TEMOZOLOMIDE [Suspect]
     Dosage: 4200 MG
  2. CELEBREX [Suspect]
     Dosage: 19200 MG
  3. ACCUTANE [Suspect]
     Dosage: 3360 MG

REACTIONS (1)
  - PNEUMOCYSTIS JIROVECI PNEUMONIA [None]
